FAERS Safety Report 5879206-0 (Version None)
Quarter: 2008Q3

REPORT INFORMATION
  Report Type: 
  Country: None (occurrence: None)
  Receive Date: 20080912
  Receipt Date: 20080903
  Transmission Date: 20090109
  Serious: Yes (Hospitalization)
  Sender: FDA-Public Use
  Company Number: US-ROCHE-584464

PATIENT
  Age: 47 Year
  Sex: Female

DRUGS (20)
  1. CELLCEPT [Suspect]
     Indication: VASCULITIS
     Dosage: GIVEN EVERY 12 HOUR
     Route: 048
     Dates: start: 20070801
  2. ACETAMINOPHEN [Concomitant]
  3. URECHOLINE [Concomitant]
  4. PHRENILIN [Concomitant]
  5. BENADRYL [Concomitant]
  6. NEXIUM [Concomitant]
  7. NORCO [Concomitant]
     Dosage: DRUG: NORCO 5/325
  8. ATARAX [Concomitant]
  9. IMODIUM [Concomitant]
  10. 1 CONCOMITANT DRUG [Concomitant]
     Dosage: DRUG: MSO4
     Route: 048
  11. REQUIP [Concomitant]
  12. TOPAMAX [Concomitant]
  13. TRAZODONE HCL [Concomitant]
  14. EFFEXOR [Concomitant]
  15. PROAMATINE [Concomitant]
  16. ADVAIR DISKUS 100/50 [Concomitant]
  17. WARFARIN SODIUM [Concomitant]
  18. SOLU-MEDROL [Concomitant]
     Indication: VASCULITIS
     Dosage: DOSE: 1 GRAM FOR 5 DAYS EVERY MONTH
     Route: 042
  19. HEPATITIS B IMMUNE GLOBULIN (HUMAN) [Concomitant]
     Indication: VASCULITIS
     Dosage: DRUG: GAMMA GLOBULIN DOSE: 35 GRAM FOR 5 DAYS ONCE/MONTH
     Route: 042
  20. UNSPECIFIED MEDICATIONS [Concomitant]

REACTIONS (2)
  - MYOSITIS [None]
  - VASCULITIS [None]
